FAERS Safety Report 15428009 (Version 1)
Quarter: 2018Q3

REPORT INFORMATION
  Report Type: Spontaneous
  Country: US (occurrence: US)
  Receive Date: 20180926
  Receipt Date: 20180926
  Transmission Date: 20181010
  Serious: No
  Sender: FDA-Public Use
  Company Number: US-PRINSTON PHARMACEUTICAL INC.-2018PRN00715

PATIENT
  Sex: Female
  Weight: 83.9 kg

DRUGS (2)
  1. UNKNOWN HYPERTENSION MEDICATION [Concomitant]
  2. VALSARTAN. [Suspect]
     Active Substance: VALSARTAN
     Indication: HYPERTENSION
     Dosage: 80 MG, 1X/DAY
     Route: 048
     Dates: end: 20180717

REACTIONS (1)
  - Renal scan abnormal [Not Recovered/Not Resolved]
